FAERS Safety Report 5669169-5 (Version None)
Quarter: 2008Q1

REPORT INFORMATION
  Report Type: 
  Country: None (occurrence: None)
  Receive Date: 20080317
  Receipt Date: 20080304
  Transmission Date: 20080703
  Serious: Yes (Other)
  Sender: FDA-Public Use
  Company Number: FR-SANOFI-SYNTHELABO-A01200802599

PATIENT
  Sex: Male

DRUGS (1)
  1. PLAVIX [Suspect]
     Indication: CORONARY ARTERY INSUFFICIENCY
     Dosage: UNK
     Route: 048

REACTIONS (1)
  - SIDEROBLASTIC ANAEMIA [None]
